FAERS Safety Report 8493594-0 (Version None)
Quarter: 2012Q3

REPORT INFORMATION
  Report Type: 
  Country: None (occurrence: None)
  Receive Date: 20120706
  Receipt Date: 20120703
  Transmission Date: 20120928
  Serious: Yes (Other)
  Sender: FDA-Public Use
  Company Number: US-PFIZER INC-2012136248

PATIENT
  Age: 85 Year
  Sex: Female

DRUGS (1)
  1. PREMARIN [Suspect]
     Dosage: 0.3 ONCE A DAY

REACTIONS (3)
  - HAIR COLOUR CHANGES [None]
  - HAIR GROWTH ABNORMAL [None]
  - ARTHROPATHY [None]
